FAERS Safety Report 7690300-4 (Version None)
Quarter: 2011Q3

REPORT INFORMATION
  Report Type: 
  Country: None (occurrence: None)
  Receive Date: 20110818
  Receipt Date: 20110808
  Transmission Date: 20111222
  Serious: Yes (Other)
  Sender: FDA-Public Use
  Company Number: US-ELI_LILLY_AND_COMPANY-US201108002605

PATIENT
  Sex: Female

DRUGS (5)
  1. LANTUS [Concomitant]
     Dosage: 20 U, EACH EVENING
     Dates: start: 20110801
  2. HUMALOG [Suspect]
     Dosage: 5 U, EACH EVENING
     Dates: start: 20110805
  3. PRANDIN [Concomitant]
     Dosage: 2 MG, QD
  4. HUMALOG [Suspect]
     Indication: DIABETES MELLITUS
     Dosage: 5 U, EACH MORNING
     Dates: start: 20110805
  5. HUMALOG [Suspect]
     Dosage: 5 U, OTHER
     Dates: start: 20110805

REACTIONS (10)
  - CHEST DISCOMFORT [None]
  - MUSCLE SPASMS [None]
  - TACHYCARDIA [None]
  - BLOOD PRESSURE INCREASED [None]
  - PALPITATIONS [None]
  - HEADACHE [None]
  - ARRHYTHMIA [None]
  - MUSCLE TWITCHING [None]
  - GAIT DISTURBANCE [None]
  - BLOOD GLUCOSE INCREASED [None]
